FAERS Safety Report 5767018-8 (Version None)
Quarter: 2008Q2

REPORT INFORMATION
  Report Type: 
  Country: None (occurrence: None)
  Receive Date: 20080609
  Receipt Date: 20080602
  Transmission Date: 20081010
  Serious: Yes (Hospitalization, Other)
  Sender: FDA-Public Use
  Company Number: 2008SP008505

PATIENT
  Age: 58 Year
  Sex: Male
  Weight: 166.0165 kg

DRUGS (2)
  1. PEG-INTRON [Suspect]
     Indication: HEPATITIS C
     Dosage: SC
     Route: 058
     Dates: start: 20080404, end: 20080526
  2. RIBAVIRIN [Suspect]
     Indication: HEPATITIS C
     Dosage: PO
     Route: 048
     Dates: start: 20080404, end: 20080526

REACTIONS (12)
  - ALOPECIA [None]
  - BLOOD CHOLESTEROL INCREASED [None]
  - CHEST PAIN [None]
  - CHROMATURIA [None]
  - CORONARY ARTERY OCCLUSION [None]
  - DEPRESSION [None]
  - DYSPNOEA [None]
  - EPISTAXIS [None]
  - INFLUENZA LIKE ILLNESS [None]
  - POLLAKIURIA [None]
  - SUICIDAL IDEATION [None]
  - WEIGHT DECREASED [None]
